FAERS Safety Report 10086543 (Version 2)
Quarter: 2014Q2

REPORT INFORMATION
  Report Type: Report from Study
  Country: US (occurrence: US)
  Receive Date: 20140418
  Receipt Date: 20140531
  Transmission Date: 20141212
  Serious: Yes (Hospitalization)
  Sender: FDA-Public Use
  Company Number: US-009507513-1404USA007162

PATIENT
  Age: 62 Year
  Sex: Male
  Weight: 97.1 kg

DRUGS (20)
  1. LISINOPRIL (+) HYDROCHLOROTHIAZIDE [Suspect]
     Indication: HYPERTENSION
     Dosage: HCTZ 12.5MG/LISINOPRIL 20MG 1X/DAY
     Route: 048
     Dates: start: 20121008, end: 20121031
  2. POTASSIUM CHLORIDE - USP [Suspect]
     Indication: HYPOKALAEMIA
     Dosage: 20 MEQ, BID
     Route: 048
     Dates: start: 2010, end: 20121031
  3. ALDACTONE (SPIRONOLACTONE) [Suspect]
     Indication: HYPERTENSION
     Dosage: 25 MG, QD
     Route: 048
     Dates: start: 2011, end: 20121031
  4. LASIX (FUROSEMIDE) [Suspect]
     Indication: HYPERTENSION
     Dosage: 40 MG,1X/DAY
     Route: 048
     Dates: start: 201207, end: 20121031
  5. LASIX (FUROSEMIDE) [Suspect]
     Dosage: 20 MG, QD
     Route: 048
     Dates: start: 20121101
  6. PLAVIX [Concomitant]
     Indication: THROMBOSIS
     Dosage: UNK
     Dates: start: 2002
  7. ADVAIR [Concomitant]
     Indication: CHRONIC OBSTRUCTIVE PULMONARY DISEASE
     Dosage: UNK
     Dates: start: 2010
  8. SPIRONOLACTONE [Concomitant]
     Indication: HYPERTENSION
     Dosage: UNK
     Dates: start: 2011
  9. LISINOPRIL [Concomitant]
     Indication: HYPERTENSION
     Dosage: UNK
     Route: 048
     Dates: start: 2011
  10. AMLODIPINE [Concomitant]
     Indication: HYPERTENSION
     Dosage: UNK
     Dates: start: 200507
  11. TRAZODONE HYDROCHLORIDE [Concomitant]
     Indication: INSOMNIA
     Dosage: UNK
     Dates: start: 201203
  12. CRESTOR [Concomitant]
     Indication: HYPERLIPIDAEMIA
     Dosage: UNK
     Dates: start: 200506
  13. FOLIC ACID [Concomitant]
     Indication: ROUTINE HEALTH MAINTENANCE
     Dosage: UNK
     Dates: start: 201208
  14. ASPIRIN [Concomitant]
     Indication: CARDIOVASCULAR EVENT PROPHYLAXIS
     Dosage: UNK
     Dates: start: 200506
  15. ANDROGEL [Concomitant]
     Indication: HYPOGONADISM
     Dosage: UNK
     Dates: start: 20120815
  16. BYSTOLIC [Concomitant]
     Indication: HYPERTENSION
     Dosage: UNK
     Dates: start: 20121018
  17. TYLENOL WITH CODEINE #3 [Concomitant]
     Indication: OSTEOARTHRITIS
     Dosage: UNK
     Dates: start: 2010
  18. VITAMINS (UNSPECIFIED) [Concomitant]
     Indication: ROUTINE HEALTH MAINTENANCE
     Dosage: UNK
     Dates: start: 200506
  19. NEXIUM [Concomitant]
     Indication: GASTROINTESTINAL DISORDER
     Dosage: UNK
     Route: 048
     Dates: start: 20120920, end: 20121008
  20. ALBUTEROL [Concomitant]
     Dosage: UNK
     Dates: start: 201402

REACTIONS (4)
  - Renal failure acute [Recovered/Resolved]
  - Chronic obstructive pulmonary disease [None]
  - Renal failure acute [None]
  - Hyperkalaemia [None]
